FAERS Safety Report 8882350 (Version 1)
Quarter: 2012Q4

REPORT INFORMATION
  Report Type: 
  Country: US (occurrence: US)
  Receive Date: 20121102
  Receipt Date: 20121102
  Transmission Date: 20130627
  Serious: Yes (Hospitalization)
  Sender: FDA-Public Use
  Company Number: PHHO2010US10904

PATIENT
  Age: 73 Year
  Sex: Male
  Weight: 60 kg

DRUGS (1)
  1. ALISKIREN [Suspect]
     Indication: CARDIAC FAILURE ACUTE
     Route: 048
     Dates: start: 20091020, end: 20101025

REACTIONS (12)
  - Decreased appetite [Recovering/Resolving]
  - Lethargy [Recovering/Resolving]
  - Weight decreased [Recovering/Resolving]
  - Failure to thrive [Recovering/Resolving]
  - Chronic obstructive pulmonary disease [Recovered/Resolved]
  - Dyspnoea [Recovering/Resolving]
  - Drug ineffective [Recovered/Resolved]
  - Concomitant disease progression [Recovered/Resolved]
  - Urinary incontinence [Not Recovered/Not Resolved]
  - Pneumonia [Recovered/Resolved]
  - Anaemia [Recovering/Resolving]
  - Bronchitis [Recovered/Resolved]
